FAERS Safety Report 6529365-1 (Version None)
Quarter: 2010Q1

REPORT INFORMATION
  Report Type: 
  Country: None (occurrence: None)
  Receive Date: 20100107
  Receipt Date: 20091228
  Transmission Date: 20100710
  Serious: Yes (Hospitalization)
  Sender: FDA-Public Use
  Company Number: JP-ASTRAZENECA-2010SE00353

PATIENT
  Age: 1 Year
  Sex: Male

DRUGS (13)
  1. PULMICORT RESPULES [Suspect]
     Indication: ASTHMA
     Route: 055
     Dates: start: 20070925
  2. ONON [Concomitant]
     Indication: ASTHMA
     Route: 048
  3. MEDICON [Concomitant]
     Indication: ASTHMA
     Route: 048
     Dates: start: 20070831
  4. PERIACTIN [Concomitant]
     Indication: ASTHMA
     Route: 048
     Dates: start: 20070831
  5. MUCODYNE [Concomitant]
     Indication: ASTHMA
     Route: 048
     Dates: start: 20070831
  6. HOKUNALIN [Concomitant]
     Indication: ASTHMA
     Route: 048
     Dates: start: 20070831
  7. PASETOCIN [Concomitant]
     Indication: BRONCHITIS
     Route: 048
     Dates: start: 20081007, end: 20081010
  8. RICAMYCIN [Concomitant]
     Indication: BRONCHITIS
     Route: 048
     Dates: start: 20081120, end: 20081123
  9. MEIACT [Concomitant]
     Indication: BALANOPOSTHITIS
     Route: 048
     Dates: start: 20090126, end: 20090130
  10. SOLU-CORTEF [Concomitant]
     Indication: ASTHMA
     Route: 041
     Dates: start: 20090423, end: 20090423
  11. VENTOLIN [Concomitant]
     Indication: ASTHMA
     Route: 055
     Dates: start: 20090423, end: 20090423
  12. BISOLVON [Concomitant]
     Indication: ASTHMA
     Route: 055
     Dates: start: 20090423, end: 20090423
  13. ALESION [Concomitant]
     Indication: DERMATITIS ATOPIC
     Route: 048
     Dates: start: 20091016

REACTIONS (1)
  - ASTHMA [None]
